FAERS Safety Report 4807139-7 (Version None)
Quarter: 2005Q4

REPORT INFORMATION
  Report Type: 
  Country: None (occurrence: None)
  Receive Date: 20051024
  Receipt Date: 20051012
  Transmission Date: 20060501
  Serious: Yes (Hospitalization)
  Sender: FDA-Public Use
  Company Number: PHEH2005US11399

PATIENT
  Age: 65 Year
  Sex: Male
  Weight: 86 kg

DRUGS (10)
  1. FERROUS SULFATE TAB [Concomitant]
     Indication: MEDICAL DIET
     Dosage: 35MG
     Dates: start: 20040708
  2. NOVOLIN 20/80 [Concomitant]
     Indication: DIABETES MELLITUS
     Dosage: 30 UNITS
  3. FOSINOPRIL SODIUM [Concomitant]
     Indication: HYPERTENSION
     Dosage: 40MG, UNK
     Dates: start: 20040801, end: 20050330
  4. COMBIVENT                               /GFR/ [Concomitant]
     Indication: CHRONIC OBSTRUCTIVE PULMONARY DISEASE
  5. ADVAIR DISKUS 100/50 [Concomitant]
     Indication: CHRONIC OBSTRUCTIVE PULMONARY DISEASE
  6. LOTREL [Suspect]
     Indication: HYPERTENSION
     Route: 048
  7. LOTREL [Suspect]
     Dosage: UNK, UNK
     Route: 048
     Dates: start: 20050429, end: 20050916
  8. TARKA [Suspect]
     Indication: HYPERTENSION
     Dosage: UNK, UNK
     Route: 048
  9. LEVOTHYROXINE [Concomitant]
     Indication: HYPOPARATHYROIDISM
     Dosage: 150 MCG
  10. TORSEMIDE [Concomitant]
     Indication: HYPERTENSION
     Dosage: 10 MG
     Dates: start: 20050609, end: 20050623

REACTIONS (4)
  - ANAEMIA [None]
  - ASTHENIA [None]
  - FATIGUE [None]
  - HAEMOGLOBIN DECREASED [None]
